FAERS Safety Report 23243345 (Version 1)
Quarter: 2023Q4

REPORT INFORMATION
  Report Type: Spontaneous
  Country: CN (occurrence: CN)
  Receive Date: 20231130
  Receipt Date: 20231130
  Transmission Date: 20240109
  Serious: Yes (Other)
  Sender: FDA-Public Use
  Company Number: CN-SHANGHAI JUNSHI BIOSCIENCES CO., LTD.-CN2023008698

PATIENT

DRUGS (3)
  1. TORIPALIMAB [Suspect]
     Active Substance: TORIPALIMAB
     Indication: Metastases to peritoneum
     Dosage: 240 MG (D1), EVERY 21 DAYS, EXTERNAL USE
     Dates: start: 20230808, end: 20230808
  2. PACLITAXEL [Suspect]
     Active Substance: PACLITAXEL
     Indication: Metastases to peritoneum
     Dosage: 160 MG (D1, D8), 21 DAYS AS ONE CYCLE
     Route: 041
     Dates: start: 20230808, end: 20230808
  3. GEMCITABINE HYDROCHLORIDE [Suspect]
     Active Substance: GEMCITABINE HYDROCHLORIDE
     Indication: Metastases to peritoneum
     Dosage: 1200 MG  (D1, D8), 21 DAYS AS ONE CYCLE
     Route: 041
     Dates: start: 20230808, end: 20230808

REACTIONS (4)
  - Myelosuppression [Recovering/Resolving]
  - Off label use [Unknown]
  - Incorrect route of product administration [Unknown]
  - Medication error [Unknown]

NARRATIVE: CASE EVENT DATE: 20230808
